FAERS Safety Report 5762950-3 (Version None)
Quarter: 2008Q2

REPORT INFORMATION
  Report Type: 
  Country: None (occurrence: None)
  Receive Date: 20080609
  Receipt Date: 20080528
  Transmission Date: 20081010
  Serious: Yes (Hospitalization)
  Sender: FDA-Public Use
  Company Number: DE-ROCHE-566966

PATIENT
  Sex: Male
  Weight: 88 kg

DRUGS (1)
  1. PEGASYS [Suspect]
     Indication: MALIGNANT MELANOMA
     Dosage: DOSAGE FORM AS PER PROTOCOL: PRE-FILLED SYRINGE. FREQUENCY AS PER PROTOCOL: ONCE WEEKLY.
     Route: 058
     Dates: start: 20070824, end: 20080527

REACTIONS (1)
  - RHABDOMYOLYSIS [None]
